FAERS Safety Report 20307511 (Version 1)
Quarter: 2022Q1

REPORT INFORMATION
  Report Type: Spontaneous
  Country: US (occurrence: None)
  Receive Date: 20220107
  Receipt Date: 20220107
  Transmission Date: 20220424
  Serious: Yes (Disabling)
  Sender: FDA-Public Use
  Company Number: US-ROCHE-2992865

PATIENT
  Age: 81 Year
  Sex: Male
  Weight: 50.5 kg

DRUGS (7)
  1. TOCILIZUMAB [Suspect]
     Active Substance: TOCILIZUMAB
     Indication: COVID-19
     Route: 042
     Dates: start: 20211211, end: 20211211
  2. DEXAMETHASONE [Concomitant]
     Active Substance: DEXAMETHASONE
     Dates: start: 20211211, end: 20211215
  3. SOLU-MEDROL [Concomitant]
     Active Substance: METHYLPREDNISOLONE SODIUM SUCCINATE
  4. VANCOMYCIN [Concomitant]
     Active Substance: VANCOMYCIN
  5. CEFEPIME [Concomitant]
     Active Substance: CEFEPIME HYDROCHLORIDE
  6. XARELTO [Concomitant]
     Active Substance: RIVAROXABAN
  7. AMIODARONE [Concomitant]
     Active Substance: AMIODARONE

REACTIONS (7)
  - Dementia [Unknown]
  - Tachycardia [Unknown]
  - Anxiety [Unknown]
  - Hypoxia [Unknown]
  - Dysphagia [Unknown]
  - Off label use [Unknown]
  - Off label use [Unknown]

NARRATIVE: CASE EVENT DATE: 20211216
